FAERS Safety Report 4903676-5 (Version None)
Quarter: 2006Q1

REPORT INFORMATION
  Report Type: 
  Country: None (occurrence: None)
  Receive Date: 20060208
  Receipt Date: 20060127
  Transmission Date: 20060701
  Serious: Yes (Other)
  Sender: FDA-Public Use
  Company Number: PHBS2006IT01669

PATIENT
  Age: 64 Year
  Sex: Female

DRUGS (1)
  1. ZOMETA [Suspect]
     Dosage: 1 DOSE EVERY 28 DAYS
     Route: 042

REACTIONS (4)
  - FISTULA [None]
  - GINGIVAL DISORDER [None]
  - LYMPHADENOPATHY [None]
  - PAIN [None]
